FAERS Safety Report 7774001-X (Version None)
Quarter: 2011Q3

REPORT INFORMATION
  Report Type: 
  Country: None (occurrence: None)
  Receive Date: 20110923
  Receipt Date: 20110915
  Transmission Date: 20111222
  Serious: Yes (Other)
  Sender: FDA-Public Use
  Company Number: DE-TEVA-300847GER

PATIENT
  Age: 0 Year
  Sex: Female
  Weight: 0.64 kg

DRUGS (1)
  1. METOCLOPRAMIDE [Suspect]
     Route: 063

REACTIONS (4)
  - VOMITING NEONATAL [None]
  - DIARRHOEA NEONATAL [None]
  - EXPOSURE DURING BREAST FEEDING [None]
  - HYPOTONIA [None]
